FAERS Safety Report 10580489 (Version 2)
Quarter: 2014Q4

REPORT INFORMATION
  Report Type: Spontaneous
  Country: US (occurrence: US)
  Receive Date: 20141113
  Receipt Date: 20141113
  Transmission Date: 20150529
  Serious: Yes (Other)
  Sender: FDA-Public Use
  Company Number: US-AUROBINDO-AUR-APL-2014-09285

PATIENT
  Age: 49 Year
  Sex: Female

DRUGS (1)
  1. DULOXETINE HYDROCHLORIDE 60 MG [Suspect]
     Active Substance: DULOXETINE HYDROCHLORIDE
     Indication: DEPRESSION
     Dosage: 60 MG, UNK
     Route: 065
     Dates: start: 20140701, end: 20140730

REACTIONS (15)
  - Feeling of despair [Recovered/Resolved]
  - Headache [Recovering/Resolving]
  - Product substitution issue [Recovered/Resolved]
  - Abnormal dreams [Recovered/Resolved]
  - Hallucination, auditory [Recovered/Resolved]
  - Crying [Recovered/Resolved]
  - Pain [Recovered/Resolved]
  - Thinking abnormal [Recovered/Resolved]
  - Affect lability [Recovered/Resolved]
  - Insomnia [Recovering/Resolving]
  - Depression [Recovered/Resolved]
  - Paraesthesia [Recovered/Resolved]
  - Abnormal behaviour [Recovered/Resolved]
  - Fibromyalgia [Recovered/Resolved]
  - Impulsive behaviour [Recovered/Resolved]

NARRATIVE: CASE EVENT DATE: 20140704
